FAERS Safety Report 5230631-0 (Version None)
Quarter: 2007Q1

REPORT INFORMATION
  Report Type: 
  Country: None (occurrence: None)
  Receive Date: 20070206
  Receipt Date: 20070131
  Transmission Date: 20070707
  Serious: Yes (Hospitalization)
  Sender: FDA-Public Use
  Company Number: GB-GLAXOSMITHKLINE-B0359495A

PATIENT
  Sex: Female

DRUGS (3)
  1. SEROXAT [Suspect]
     Route: 065
  2. ZIMOVANE [Concomitant]
     Route: 065
  3. ALCOHOL [Concomitant]
     Route: 065

REACTIONS (4)
  - AGGRESSION [None]
  - DRUG WITHDRAWAL SYNDROME [None]
  - OVERDOSE [None]
  - SUICIDE ATTEMPT [None]
